FAERS Safety Report 23808642 (Version 1)
Quarter: 2024Q2

REPORT INFORMATION
  Report Type: Spontaneous
  Country: BE (occurrence: BE)
  Receive Date: 20240502
  Receipt Date: 20240502
  Transmission Date: 20240716
  Serious: Yes (Other)
  Sender: FDA-Public Use
  Company Number: BE-ABBVIE-5723522

PATIENT
  Age: 50 Year
  Sex: Female

DRUGS (15)
  1. STELARA [Suspect]
     Active Substance: USTEKINUMAB
     Indication: Product used for unknown indication
     Route: 065
     Dates: start: 2008, end: 2013
  2. REMICADE [Suspect]
     Active Substance: INFLIXIMAB
     Indication: Product used for unknown indication
     Route: 041
     Dates: start: 2008, end: 2013
  3. CYCLOSPORINE [Suspect]
     Active Substance: CYCLOSPORINE
     Indication: Product used for unknown indication
     Route: 065
     Dates: start: 2008, end: 2013
  4. ETANERCEPT [Suspect]
     Active Substance: ETANERCEPT
     Indication: Product used for unknown indication
     Route: 065
     Dates: start: 2013, end: 2015
  5. ETANERCEPT [Suspect]
     Active Substance: ETANERCEPT
     Dates: start: 2008, end: 2013
  6. ADALIMUMAB [Suspect]
     Active Substance: ADALIMUMAB\ISOPROPYL ALCOHOL
     Indication: Psoriasis
     Route: 058
     Dates: start: 2008, end: 2013
  7. METHOTREXATE [Suspect]
     Active Substance: METHOTREXATE
     Indication: Product used for unknown indication
     Route: 065
     Dates: start: 2008, end: 2013
  8. METHOTREXATE [Suspect]
     Active Substance: METHOTREXATE
     Route: 065
     Dates: start: 2016, end: 2018
  9. METHOTREXATE [Suspect]
     Active Substance: METHOTREXATE
     Route: 065
     Dates: start: 2015
  10. SECUKINUMAB [Concomitant]
     Active Substance: SECUKINUMAB
     Indication: Product used for unknown indication
     Dates: start: 201804, end: 202007
  11. NEOTIGASON [Concomitant]
     Active Substance: ACITRETIN
     Indication: Product used for unknown indication
     Dates: start: 201801, end: 201804
  12. METHOTREXATE [Concomitant]
     Active Substance: METHOTREXATE
     Indication: Product used for unknown indication
     Dates: start: 202209
  13. METHOTREXATE [Concomitant]
     Active Substance: METHOTREXATE
  14. IXEKIZUMAB [Concomitant]
     Active Substance: IXEKIZUMAB
     Indication: Product used for unknown indication
     Dates: start: 202009, end: 202104
  15. APREMILAST [Concomitant]
     Active Substance: APREMILAST
     Indication: Product used for unknown indication
     Dates: start: 2016, end: 2018

REACTIONS (13)
  - Psoriatic arthropathy [Recovered/Resolved]
  - Osteoarthritis [Unknown]
  - Pruritus [Unknown]
  - Lymphadenectomy [Unknown]
  - Joint dislocation [Unknown]
  - Therapeutic product effect decreased [Unknown]
  - Mental disorder [Recovered/Resolved]
  - Breast cancer female [Unknown]
  - Depression [Unknown]
  - Psoriasis [Recovered/Resolved]
  - Suicidal ideation [Unknown]
  - Skin burning sensation [Unknown]
  - Breast cancer female [Unknown]

NARRATIVE: CASE EVENT DATE: 20151101
